FAERS Safety Report 4863169-0 (Version None)
Quarter: 2005Q4

REPORT INFORMATION
  Report Type: 
  Country: None (occurrence: None)
  Receive Date: 20051201
  Receipt Date: 20050721
  Transmission Date: 20060501
  Serious: No
  Sender: FDA-Public Use
  Company Number: 2005PV000496

PATIENT
  Age: 68 Year
  Sex: Female
  Weight: 92.5338 kg

DRUGS (9)
  1. BYETTA [Suspect]
     Indication: DIABETES MELLITUS NON-INSULIN-DEPENDENT
     Dosage: 5 UG;BID;SC
     Route: 058
     Dates: start: 20050719, end: 20050720
  2. NOVOLOG [Concomitant]
  3. LANTUS [Concomitant]
  4. AVAPRO [Concomitant]
  5. SYNTHROID [Concomitant]
  6. TOPROL [Concomitant]
  7. CRESTOR [Concomitant]
  8. GLUCOTROL [Concomitant]
  9. LANTUS [Concomitant]

REACTIONS (1)
  - BLOOD GLUCOSE INCREASED [None]
